FAERS Safety Report 9804776 (Version 1)
Quarter: 2014Q1

REPORT INFORMATION
  Report Type: Spontaneous
  Country: US (occurrence: US)
  Receive Date: 20140108
  Receipt Date: 20140108
  Transmission Date: 20141002
  Serious: Yes (Other)
  Sender: FDA-Public Use
  Company Number: US-RB-062338-14

PATIENT
  Age: 40 Year
  Sex: Female

DRUGS (2)
  1. SUBOXONE FILM [Suspect]
     Indication: DRUG DEPENDENCE
     Dosage: SUBOXONE FILM
     Route: 060
     Dates: start: 201307, end: 201309
  2. TRAZADONE [Concomitant]
     Indication: INSOMNIA
     Dosage: DOSING DETAILS UNKNOWN
     Route: 048

REACTIONS (3)
  - Irritable bowel syndrome [Recovered/Resolved]
  - Abdominal pain upper [Recovered/Resolved]
  - Abdominal distension [Recovered/Resolved]
